FAERS Safety Report 6638470-0 (Version None)
Quarter: 2010Q1

REPORT INFORMATION
  Report Type: 
  Country: None (occurrence: None)
  Receive Date: 20100316
  Receipt Date: 20100316
  Transmission Date: 20100710
  Serious: Yes (Other)
  Sender: FDA-Public Use
  Company Number: None

PATIENT
  Age: 12 Year
  Sex: Male
  Weight: 39.4629 kg

DRUGS (1)
  1. ZYFLO [Suspect]
     Indication: ASTHMA
     Dosage: 600 MG TWICE DAILY PO
     Route: 048
     Dates: start: 20090922, end: 20091210

REACTIONS (4)
  - ABNORMAL BEHAVIOUR [None]
  - DEPRESSION [None]
  - PYREXIA [None]
  - SOCIAL AVOIDANT BEHAVIOUR [None]
